FAERS Safety Report 6782074-6 (Version None)
Quarter: 2010Q2

REPORT INFORMATION
  Report Type: 
  Country: None (occurrence: None)
  Receive Date: 20100621
  Receipt Date: 20100614
  Transmission Date: 20101027
  Serious: Yes (Other)
  Sender: FDA-Public Use
  Company Number: B0660976A

PATIENT
  Age: 8 Year
  Sex: Male

DRUGS (6)
  1. SERETIDE [Suspect]
     Indication: ASTHMA
     Dosage: 4IUAX PER DAY
     Route: 055
  2. SERETIDE [Suspect]
     Indication: DRUG USE FOR UNKNOWN INDICATION
     Route: 055
     Dates: start: 20100605, end: 20100605
  3. ONON [Concomitant]
     Indication: DRUG USE FOR UNKNOWN INDICATION
     Dosage: 1.4G PER DAY
     Route: 048
  4. ONON [Concomitant]
     Dosage: 7G PER DAY
     Route: 048
     Dates: start: 20100605, end: 20100605
  5. EPINASTINE [Concomitant]
     Dosage: 10MG PER DAY
     Route: 048
  6. EPINASTINE [Concomitant]
     Dosage: 200MG PER DAY
     Route: 048
     Dates: start: 20100605, end: 20100605

REACTIONS (4)
  - BLOOD PRESSURE DECREASED [None]
  - HYPOAESTHESIA [None]
  - HYPOKALAEMIA [None]
  - OVERDOSE [None]
